FAERS Safety Report 14475664 (Version 1)
Quarter: 2018Q1

REPORT INFORMATION
  Report Type: Report from Study
  Country: US (occurrence: US)
  Receive Date: 20180201
  Receipt Date: 20180201
  Transmission Date: 20180509
  Serious: Yes (Death, Hospitalization)
  Sender: FDA-Public Use
  Company Number: US-TAKEDA-2018TUS002658

PATIENT
  Age: 28 Year
  Sex: Female

DRUGS (1)
  1. PONATINIB [Suspect]
     Active Substance: PONATINIB
     Indication: ACUTE LEUKAEMIA
     Dosage: 45 MG, QD
     Route: 048
     Dates: start: 20180111

REACTIONS (1)
  - Death [Fatal]

NARRATIVE: CASE EVENT DATE: 20180119
